FAERS Safety Report 18074204 (Version 1)
Quarter: 2020Q3

REPORT INFORMATION
  Report Type: Report from Study
  Country: DE (occurrence: DE)
  Receive Date: 20200727
  Receipt Date: 20200727
  Transmission Date: 20201103
  Serious: Yes (Hospitalization)
  Sender: FDA-Public Use
  Company Number: DE-SA-2020SA193308

PATIENT

DRUGS (4)
  1. NOVAMIN [AMINO ACIDS NOS] [Concomitant]
     Active Substance: AMINO ACIDS, SOURCE UNSPECIFIED
  2. IBUPROFEN. [Concomitant]
     Active Substance: IBUPROFEN
     Dosage: 800 MG
  3. DUPILUMAB [Suspect]
     Active Substance: DUPILUMAB
     Dosage: UNK
     Route: 058
     Dates: start: 20200206, end: 20200312
  4. PANTOPRAZOLE [Concomitant]
     Active Substance: PANTOPRAZOLE

REACTIONS (1)
  - Medical device removal [Recovered/Resolved]

NARRATIVE: CASE EVENT DATE: 20200701
